FAERS Safety Report 7605647-7 (Version None)
Quarter: 2011Q3

REPORT INFORMATION
  Report Type: 
  Country: None (occurrence: None)
  Receive Date: 20110713
  Receipt Date: 20110713
  Transmission Date: 20111222
  Serious: Yes (Other)
  Sender: FDA-Public Use
  Company Number: None

PATIENT
  Age: 70 Year
  Sex: Female
  Weight: 69.399 kg

DRUGS (1)
  1. CARVEDILOL [Suspect]

REACTIONS (3)
  - CATARACT [None]
  - CONDITION AGGRAVATED [None]
  - DISEASE PROGRESSION [None]
